FAERS Safety Report 18986481 (Version 2)
Quarter: 2021Q1

REPORT INFORMATION
  Report Type: Report from Study
  Country: GB (occurrence: GB)
  Receive Date: 20210309
  Receipt Date: 20210325
  Transmission Date: 20210420
  Serious: Yes (Hospitalization, Other)
  Sender: FDA-Public Use
  Company Number: GB-EMD SERONO-9223052

PATIENT
  Age: 68 Year
  Sex: Male

DRUGS (1)
  1. REBIF [Suspect]
     Active Substance: INTERFERON BETA-1A
     Indication: MULTIPLE SCLEROSIS
     Dosage: 12MIU CARTRIDGES
     Route: 058
     Dates: start: 1992, end: 202102

REACTIONS (3)
  - Illness [Unknown]
  - Urinary tract infection [Unknown]
  - Bacterial prostatitis [Unknown]
